FAERS Safety Report 16802046 (Version 2)
Quarter: 2019Q4

REPORT INFORMATION
  Report Type: Spontaneous
  Country: CN (occurrence: CN)
  Receive Date: 20190912
  Receipt Date: 20191004
  Transmission Date: 20200122
  Serious: Yes (Death)
  Sender: FDA-Public Use
  Company Number: CN-GE HEALTHCARE LIFE SCIENCES-2019CSU004687

PATIENT

DRUGS (9)
  1. CLOPIDOGREL [Concomitant]
     Active Substance: CLOPIDOGREL BISULFATE
     Dosage: 75 MG, QD FOR 5 DAYS BEFORE CAROTID ARTERY ANGIOPLASTY
  2. OMNIPAQUE [Suspect]
     Active Substance: IOHEXOL
     Indication: DIZZINESS
  3. PHENOBARBITAL. [Concomitant]
     Active Substance: PHENOBARBITAL
     Indication: CAROTID ANGIOPLASTY
     Dosage: 100 MG, ONCE (HALF AN HOUR BEFORE CAROTID ARTERY ANGIOPLASTY)
     Route: 030
  4. OMNIPAQUE [Suspect]
     Active Substance: IOHEXOL
     Indication: CAROTID ANGIOPLASTY
     Dosage: 5-8 ML/INJECTION X6 TIMES (A TOTAL VOLUME OF LESS THAN 50 ML)
     Route: 013
  5. ASPIRIN. [Concomitant]
     Active Substance: ASPIRIN
     Dosage: 100 MG, QD FOR 5 DAYS BEFORE CAROTID ARTERY ANGIOPLASTY
     Route: 048
  6. DEXAMETHASONE. [Concomitant]
     Active Substance: DEXAMETHASONE
     Indication: CAROTID ANGIOPLASTY
     Dosage: 10 MG, ONCE (HALF AN HOUR BEFORE CAROTID ARTERY ANGIOPLASTY)
     Route: 042
  7. OMNIPAQUE [Suspect]
     Active Substance: IOHEXOL
     Indication: HYPOAESTHESIA
  8. OMNIPAQUE [Suspect]
     Active Substance: IOHEXOL
     Indication: MUSCULAR WEAKNESS
  9. HEPARIN [Concomitant]
     Active Substance: HEPARIN SODIUM
     Indication: CAROTID ANGIOPLASTY
     Dosage: 5000 IU, UNK
     Route: 042

REACTIONS (5)
  - Status epilepticus [Fatal]
  - Acute kidney injury [Fatal]
  - Anaphylactic reaction [Fatal]
  - Neurotoxicity [Fatal]
  - Brain oedema [Fatal]
